FAERS Safety Report 5163050-6 (Version None)
Quarter: 2006Q4

REPORT INFORMATION
  Report Type: 
  Country: None (occurrence: None)
  Receive Date: 20061201
  Receipt Date: 20061128
  Transmission Date: 20070319
  Serious: Yes (Life-Threatening, Hospitalization)
  Sender: FDA-Public Use
  Company Number: SE-BOEHRINGER INGELHEIM PHARMACEUTICALS, INC.-2006-BP-13883BP

PATIENT
  Sex: Female
  Weight: 65 kg

DRUGS (5)
  1. MICARDIS [Suspect]
     Indication: CARDIOVASCULAR DISORDER
     Route: 048
     Dates: start: 20030326
  2. MICARDIS [Suspect]
     Indication: CEREBROVASCULAR ACCIDENT PROPHYLAXIS
  3. RAMIPRIL [Suspect]
     Indication: CARDIOVASCULAR DISORDER
     Route: 048
     Dates: start: 20030326
  4. RAMIPRIL [Suspect]
     Indication: CEREBROVASCULAR ACCIDENT PROPHYLAXIS
  5. CARVEDILOL [Suspect]

REACTIONS (5)
  - ATRIAL FIBRILLATION [None]
  - ATRIOVENTRICULAR BLOCK THIRD DEGREE [None]
  - BUNDLE BRANCH BLOCK [None]
  - CARDIAC ARREST [None]
  - HYPERKALAEMIA [None]
